FAERS Safety Report 20754990 (Version 1)
Quarter: 2022Q2

REPORT INFORMATION
  Report Type: Spontaneous
  Country: US (occurrence: US)
  Receive Date: 20220427
  Receipt Date: 20220427
  Transmission Date: 20220721
  Serious: No
  Sender: FDA-Public Use
  Company Number: US-ORGANON-O2204USA001869

PATIENT
  Sex: Female

DRUGS (3)
  1. FOSAMAX [Suspect]
     Active Substance: ALENDRONATE SODIUM
     Indication: Osteoporosis
     Dosage: 70MG ONCE WEEKLY
     Route: 048
     Dates: start: 20220102, end: 20220410
  2. BACLOFEN [Concomitant]
     Active Substance: BACLOFEN
     Dosage: UNK
  3. NALTREXONE [Concomitant]
     Active Substance: NALTREXONE
     Dosage: UNK

REACTIONS (4)
  - Peripheral swelling [Not Recovered/Not Resolved]
  - Limb discomfort [Not Recovered/Not Resolved]
  - Back pain [Not Recovered/Not Resolved]
  - Muscle spasms [Not Recovered/Not Resolved]

NARRATIVE: CASE EVENT DATE: 20220301
